FAERS Safety Report 25099163 (Version 1)
Quarter: 2025Q1

REPORT INFORMATION
  Report Type: Report from Study
  Country: CN (occurrence: CN)
  Receive Date: 20250320
  Receipt Date: 20250320
  Transmission Date: 20250409
  Serious: Yes (Other)
  Sender: ALEXION PHARMACEUTICALS
  Company Number: CN-ASTRAZENECA-202503GLO008747CN

PATIENT
  Age: 14 Year

DRUGS (4)
  1. SELUMETINIB [Suspect]
     Active Substance: SELUMETINIB
     Dosage: 40 MILLIGRAM, BID
     Route: 065
  2. CEFDINIR [Concomitant]
     Active Substance: CEFDINIR
     Dosage: UNK, MILLIGRAM, TID
     Route: 065
  3. FUSIDIC ACID [Concomitant]
     Active Substance: FUSIDIC ACID
     Dosage: UNK,GRAM,BID
     Route: 065
  4. BIFONAZOLE [Concomitant]
     Active Substance: BIFONAZOLE
     Dosage: UNK, GRAM, QD
     Route: 065

REACTIONS (1)
  - Erythema multiforme [Not Recovered/Not Resolved]
